FAERS Safety Report 5607879-6 (Version None)
Quarter: 2008Q1

REPORT INFORMATION
  Report Type: 
  Country: None (occurrence: None)
  Receive Date: 20080130
  Receipt Date: 20080118
  Transmission Date: 20080703
  Serious: Yes (Hospitalization)
  Sender: FDA-Public Use
  Company Number: US-WYE-H01146707

PATIENT
  Sex: Male

DRUGS (1)
  1. TEMSIROLIMUS [Suspect]
     Indication: RENAL CELL CARCINOMA
     Route: 042
     Dates: start: 20071012

REACTIONS (3)
  - BLOOD PRESSURE INCREASED [None]
  - INTESTINAL PERFORATION [None]
  - PERITONITIS [None]
